FAERS Safety Report 8340268-2 (Version None)
Quarter: 2012Q2

REPORT INFORMATION
  Report Type: 
  Country: None (occurrence: None)
  Receive Date: 20120507
  Receipt Date: 20120501
  Transmission Date: 20120825
  Serious: Yes (Death, Other)
  Sender: FDA-Public Use
  Company Number: PHHY2012CA025050

PATIENT
  Sex: Female

DRUGS (20)
  1. TRAZODONE HCL [Concomitant]
  2. ASPIRIN [Concomitant]
  3. AZITHROMYCIN [Concomitant]
  4. TRAMADOL HCL [Concomitant]
  5. TOBI [Suspect]
     Indication: BRONCHIECTASIS
     Dosage: 300 MG, BID
     Dates: start: 20111201, end: 20120107
  6. TOBI [Suspect]
     Dosage: UNK
  7. VITAMIN D [Concomitant]
  8. ACTONEL [Concomitant]
  9. HALOPERIDOL [Concomitant]
  10. TRAMADOL HYDROCHLORIDE/ACETAMINOPHEN [Concomitant]
  11. CALCIUM CARBONATE [Concomitant]
  12. VENTOLIN [Concomitant]
  13. VITAMIN E [Concomitant]
  14. COLACE [Concomitant]
  15. SPIRIVA [Concomitant]
  16. SYMBICORT [Concomitant]
  17. TRAMADOL HYDROCHLORIDE [Concomitant]
  18. ATIVAN [Concomitant]
  19. PREDNISONE [Concomitant]
  20. PIPERACILLIN AND TAZOBACTAM [Concomitant]

REACTIONS (12)
  - OXYGEN SATURATION DECREASED [None]
  - FATIGUE [None]
  - DYSPNOEA [None]
  - ASTHENIA [None]
  - DELIRIUM [None]
  - CONFUSIONAL STATE [None]
  - RESTLESSNESS [None]
  - PNEUMONIA [None]
  - COUGH [None]
  - RESPIRATORY FAILURE [None]
  - DEATH [None]
  - SPUTUM DISCOLOURED [None]
